FAERS Safety Report 13226474 (Version 1)
Quarter: 2017Q1

REPORT INFORMATION
  Report Type: Spontaneous
  Country: US (occurrence: US)
  Receive Date: 20170213
  Receipt Date: 20170213
  Transmission Date: 20170428
  Serious: Yes (Death, Hospitalization, Other)
  Sender: FDA-Public Use
  Company Number: US-AMGEN-USASP2017021707

PATIENT
  Age: 26 Year
  Sex: Male

DRUGS (4)
  1. CYTOXAN [Concomitant]
     Active Substance: CYCLOPHOSPHAMIDE
     Dosage: UNK
  2. CISPLATIN. [Concomitant]
     Active Substance: CISPLATIN
     Dosage: UNK
  3. XGEVA [Suspect]
     Active Substance: DENOSUMAB
     Indication: PRODUCT USED FOR UNKNOWN INDICATION
     Dosage: 120 MG, UNK
     Route: 065
     Dates: start: 20151222, end: 20160105
  4. DOXORUBICIN [Concomitant]
     Active Substance: DOXORUBICIN
     Dosage: UNK

REACTIONS (6)
  - Death [Fatal]
  - Mental status changes [Unknown]
  - Hypercalcaemia [Not Recovered/Not Resolved]
  - Blood 1,25-dihydroxycholecalciferol increased [Unknown]
  - Multiple organ dysfunction syndrome [Unknown]
  - Treatment failure [Unknown]

NARRATIVE: CASE EVENT DATE: 201512
